FAERS Safety Report 5703949-2 (Version None)
Quarter: 2008Q2

REPORT INFORMATION
  Report Type: 
  Country: None (occurrence: None)
  Receive Date: 20080409
  Receipt Date: 20080325
  Transmission Date: 20081010
  Serious: Yes (Other)
  Sender: FDA-Public Use
  Company Number: 2008S1004885

PATIENT
  Age: 36 Year
  Sex: Female

DRUGS (3)
  1. CITALOPRAM HYDROBROMIDE [Suspect]
     Indication: INTENTIONAL OVERDOSE
  2. OPIPRAMOL (OPIPRAMOL) [Suspect]
     Indication: COMPLETED SUICIDE
  3. ALCOHOL /00002101/ (ETHANOL) [Concomitant]
     Indication: INTENTIONAL OVERDOSE

REACTIONS (4)
  - HYPOTENSION [None]
  - INTENTIONAL OVERDOSE [None]
  - MUSCLE SPASMS [None]
  - SOMNOLENCE [None]
